FAERS Safety Report 11445161 (Version 2)
Quarter: 2015Q3

REPORT INFORMATION
  Report Type: Spontaneous
  Country: US (occurrence: US)
  Receive Date: 20150902
  Receipt Date: 20150908
  Transmission Date: 20151125
  Serious: Yes (Other)
  Sender: FDA-Public Use
  Company Number: CHPA2015US010112

PATIENT
  Age: 48 Year
  Sex: Male

DRUGS (4)
  1. GAS-X EXTRA STRENGTH [Suspect]
     Active Substance: DIMETHICONE
     Indication: ABDOMINAL DISTENSION
     Dosage: 4 TO 6, QD
     Route: 048
  2. GAS-X EXTRA STRENGTH [Suspect]
     Active Substance: DIMETHICONE
     Dosage: 2 TO 3, QD
     Route: 048
  3. GAS-X EXTRA STRENGTH [Suspect]
     Active Substance: DIMETHICONE
     Dosage: 2 TO 6, QD
     Route: 048
  4. GAS-X EXTRA STRENGTH [Suspect]
     Active Substance: DIMETHICONE
     Dosage: 1 DF, QD
     Route: 048

REACTIONS (5)
  - Off label use [Unknown]
  - Food poisoning [Not Recovered/Not Resolved]
  - Diabetes mellitus [Not Recovered/Not Resolved]
  - Blood glucose increased [Recovering/Resolving]
  - Bowel movement irregularity [Not Recovered/Not Resolved]

NARRATIVE: CASE EVENT DATE: 20150826
